FAERS Safety Report 6168946-4 (Version None)
Quarter: 2009Q2

REPORT INFORMATION
  Report Type: 
  Country: None (occurrence: None)
  Receive Date: 20090427
  Receipt Date: 20080424
  Transmission Date: 20091009
  Serious: Yes (Other)
  Sender: FDA-Public Use
  Company Number: CN-JNJFOC-20080406504

PATIENT

DRUGS (3)
  1. ITRACONAZOLE [Suspect]
     Route: 042
  2. ITRACONAZOLE [Suspect]
     Indication: SYSTEMIC MYCOSIS
     Route: 042
  3. ITRACONAZOLE [Suspect]
     Route: 048

REACTIONS (2)
  - HAEMOLYTIC ANAEMIA [None]
  - RENAL FAILURE [None]
